FAERS Safety Report 11727421 (Version 4)
Quarter: 2016Q1

REPORT INFORMATION
  Report Type: Spontaneous
  Country: FR (occurrence: FR)
  Receive Date: 20151112
  Receipt Date: 20160311
  Transmission Date: 20160525
  Serious: Yes (Other)
  Sender: FDA-Public Use
  Company Number: FR-CLINIGEN GROUP PLC/ CLINIGEN HEALTHCARE LTD-FR-CLGN-15-00085

PATIENT

DRUGS (1)
  1. FOSCAVIR [Suspect]
     Active Substance: FOSCARNET SODIUM
     Indication: CYTOMEGALOVIRUS INFECTION
     Route: 065

REACTIONS (7)
  - Off label use [Recovered/Resolved]
  - Multiple organ dysfunction syndrome [Unknown]
  - Colitis [Unknown]
  - Myocarditis [Unknown]
  - Pancreatitis [Unknown]
  - Shock [Unknown]
  - Renal impairment [Unknown]
